FAERS Safety Report 4511245-4 (Version None)
Quarter: 2004Q4

REPORT INFORMATION
  Report Type: 
  Country: None (occurrence: None)
  Receive Date: 20041122
  Receipt Date: 20041122
  Transmission Date: 20050328
  Serious: Yes (Life-Threatening)
  Sender: FDA-Public Use
  Company Number: None

PATIENT
  Sex: Female
  Weight: 49.8957 kg

DRUGS (3)
  1. TAGAMET HB 200 [Suspect]
     Indication: GASTRITIS
     Dosage: 200 MG BID ORAL
     Route: 048
     Dates: start: 20041025, end: 20041119
  2. LEXAPRO [Suspect]
     Indication: ANXIETY
     Dosage: 20 MG  QD ORAL
     Route: 048
     Dates: start: 20040719, end: 20041118
  3. LEXAPRO [Suspect]
     Indication: DEPRESSION
     Dosage: 20 MG  QD ORAL
     Route: 048
     Dates: start: 20040719, end: 20041118

REACTIONS (9)
  - AKATHISIA [None]
  - ANOREXIA [None]
  - DRUG TOXICITY [None]
  - GASTRIC DISORDER [None]
  - HEADACHE [None]
  - INSOMNIA [None]
  - SIMPLE PARTIAL SEIZURES [None]
  - STRESS SYMPTOMS [None]
  - VOMITING [None]
